FAERS Safety Report 20103134 (Version 1)
Quarter: 2021Q4

REPORT INFORMATION
  Report Type: Spontaneous
  Country: GB (occurrence: GB)
  Receive Date: 20211123
  Receipt Date: 20211123
  Transmission Date: 20220304
  Serious: Yes (Other)
  Sender: FDA-Public Use
  Company Number: GB-MLMSERVICE-20211109-3212241-1

PATIENT
  Age: 49 Year
  Sex: Male

DRUGS (5)
  1. LINEZOLID [Suspect]
     Active Substance: LINEZOLID
     Dosage: 600 MG, 2X/DAY
     Route: 048
  2. MOXIFLOXACIN [Concomitant]
     Active Substance: MOXIFLOXACIN
     Dosage: 800 MG, 1X/DAY
     Route: 048
  3. MOXIFLOXACIN [Concomitant]
     Active Substance: MOXIFLOXACIN
     Dosage: 400 MG, 2X/DAY
     Route: 048
  4. MEROPENEM [Concomitant]
     Active Substance: MEROPENEM
     Dosage: 2 G, 3X/DAY
  5. IMIPENEM [Concomitant]
     Active Substance: IMIPENEM
     Dosage: 500 MG, 1X/DAY
     Route: 042

REACTIONS (1)
  - Haemoglobin decreased [Unknown]
